FAERS Safety Report 9001152 (Version 1)
Quarter: 2013Q1

REPORT INFORMATION
  Report Type: Report from Study
  Country: CA (occurrence: CA)
  Receive Date: 20130107
  Receipt Date: 20130107
  Transmission Date: 20140127
  Serious: Yes (Other)
  Sender: FDA-Public Use
  Company Number: CA-JNJFOC-20130101149

PATIENT
  Sex: Female
  Weight: 77 kg

DRUGS (4)
  1. REMICADE [Suspect]
     Indication: CROHN^S DISEASE
     Route: 042
     Dates: start: 2007
  2. HYDROCORTISONE [Concomitant]
     Indication: PREMEDICATION
     Route: 042
  3. GRAVOL [Concomitant]
     Indication: PREMEDICATION
     Route: 042
  4. PERCOCET [Concomitant]
     Indication: ANORECTAL DISCOMFORT
     Route: 065

REACTIONS (4)
  - Anorectal discomfort [Unknown]
  - Proctalgia [Unknown]
  - Rectal haemorrhage [Unknown]
  - Constipation [Unknown]
